FAERS Safety Report 25351336 (Version 2)
Quarter: 2025Q3

REPORT INFORMATION
  Report Type: Spontaneous
  Country: US (occurrence: US)
  Receive Date: 20250523
  Receipt Date: 20250810
  Transmission Date: 20251020
  Serious: No
  Sender: ALEXION PHARMACEUTICALS
  Company Number: US-AstraZeneca-CH-00874309A

PATIENT

DRUGS (2)
  1. SAPHNELO [Suspect]
     Active Substance: ANIFROLUMAB-FNIA
     Route: 065
  2. BENLYSTA [Concomitant]
     Active Substance: BELIMUMAB
     Route: 065

REACTIONS (2)
  - Rash [Unknown]
  - Eye disorder [Unknown]
